FAERS Safety Report 5219987-2 (Version None)
Quarter: 2006Q4

REPORT INFORMATION
  Report Type: 
  Country: None (occurrence: None)
  Receive Date: 20061201
  Receipt Date: 20060714
  Transmission Date: 20070319
  Serious: No
  Sender: FDA-Public Use
  Company Number: 2006PV017690

PATIENT
  Sex: Female

DRUGS (3)
  1. BYETTA [Suspect]
     Indication: DRUG USE FOR UNKNOWN INDICATION
     Dosage: SC
     Route: 058
     Dates: start: 20060701
  2. ESTROGEN NOS [Concomitant]
  3. TESTOSTERONE [Concomitant]

REACTIONS (11)
  - APATHY [None]
  - BURNING SENSATION [None]
  - CONSTIPATION [None]
  - DYSPEPSIA [None]
  - FATIGUE [None]
  - FUNGAL SKIN INFECTION [None]
  - HEADACHE [None]
  - LAZINESS [None]
  - NAUSEA [None]
  - NECK PAIN [None]
  - SOMNOLENCE [None]
